FAERS Safety Report 18255155 (Version 2)
Quarter: 2020Q3

REPORT INFORMATION
  Report Type: Report from Study
  Country: US (occurrence: US)
  Receive Date: 20200910
  Receipt Date: 20200924
  Transmission Date: 20201103
  Serious: Yes (Hospitalization, Other)
  Sender: FDA-Public Use
  Company Number: US-JNJFOC-A-NJ2019-186963

PATIENT
  Age: 48 Year
  Sex: Male
  Weight: 85.71 kg

DRUGS (27)
  1. AMIODARONE [Concomitant]
     Active Substance: AMIODARONE
  2. REGLAN [Concomitant]
     Active Substance: METOCLOPRAMIDE HYDROCHLORIDE
  3. VELETRI [Suspect]
     Active Substance: EPOPROSTENOL
     Dosage: 42 NG/KG, PER MIN
     Route: 042
  4. BUMEX [Concomitant]
     Active Substance: BUMETANIDE
     Dosage: UNK
  5. SPIRIVA [Concomitant]
     Active Substance: TIOTROPIUM BROMIDE MONOHYDRATE
     Dosage: UNK
  6. VELETRI [Suspect]
     Active Substance: EPOPROSTENOL
     Dosage: 24 NG/KG, PER MIN
     Route: 042
  7. VELETRI [Suspect]
     Active Substance: EPOPROSTENOL
     Dosage: 50 NG/KG, PER MIN
     Route: 042
  8. VELETRI [Suspect]
     Active Substance: EPOPROSTENOL
     Dosage: 16 NG/KG, PER MIN
     Route: 042
  9. IMODIUM [Concomitant]
     Active Substance: LOPERAMIDE HYDROCHLORIDE
     Dosage: UNK
  10. EFFEXOR [Concomitant]
     Active Substance: VENLAFAXINE HYDROCHLORIDE
     Dosage: UNK
  11. ATIVAN [Concomitant]
     Active Substance: LORAZEPAM
     Dosage: UNK
  12. MARINOL [Concomitant]
     Active Substance: DRONABINOL
  13. VELETRI [Suspect]
     Active Substance: EPOPROSTENOL
     Dosage: 43 NG/KG, PER MIN
     Route: 042
  14. MORPHINE [Suspect]
     Active Substance: MORPHINE
     Indication: PAIN
     Dosage: UNK
     Route: 065
  15. ADEMPAS [Concomitant]
     Active Substance: RIOCIGUAT
  16. WARFARIN [Concomitant]
     Active Substance: WARFARIN
  17. VELETRI [Suspect]
     Active Substance: EPOPROSTENOL
     Dosage: 35 NG/KG, PER MIN
     Route: 042
  18. AMBIEN [Concomitant]
     Active Substance: ZOLPIDEM TARTRATE
  19. VELETRI [Suspect]
     Active Substance: EPOPROSTENOL
     Dosage: 14 NG/KG, PER MIN
     Route: 042
  20. LETAIRIS [Concomitant]
     Active Substance: AMBRISENTAN
  21. NEURONTIN [Concomitant]
     Active Substance: GABAPENTIN
     Dosage: UNK
  22. PROTONIX [Concomitant]
     Active Substance: PANTOPRAZOLE SODIUM
     Dosage: UNK
  23. POTASSIUM [Concomitant]
     Active Substance: POTASSIUM
  24. VELETRI [Suspect]
     Active Substance: EPOPROSTENOL
     Indication: PULMONARY ARTERIAL HYPERTENSION
     Route: 042
  25. UPTRAVI [Concomitant]
     Active Substance: SELEXIPAG
     Route: 048
  26. SYMBICORT [Concomitant]
     Active Substance: BUDESONIDE\FORMOTEROL FUMARATE DIHYDRATE
  27. K?DUR [Concomitant]
     Active Substance: POTASSIUM CHLORIDE

REACTIONS (45)
  - Skin culture positive [Recovered/Resolved]
  - Diastolic dysfunction [Recovered/Resolved]
  - Fluid retention [Unknown]
  - Somnolence [Unknown]
  - Malaise [Unknown]
  - Pain [Unknown]
  - Catheter culture positive [Recovered/Resolved]
  - Cardiac failure [Recovered/Resolved]
  - Anxiety [Unknown]
  - Hernia [Unknown]
  - Depression [Unknown]
  - Pulmonary hypertension [Recovered/Resolved]
  - Paracentesis [Not Recovered/Not Resolved]
  - Atrial fibrillation [Recovered/Resolved]
  - Depressed level of consciousness [Recovered/Resolved]
  - Diarrhoea [Unknown]
  - Fall [Unknown]
  - Mental status changes [Recovered/Resolved]
  - Pseudomonas infection [Recovered/Resolved]
  - Catheter site erythema [Recovered/Resolved]
  - Catheter management [Unknown]
  - Confusional state [Recovered/Resolved]
  - Dyspnoea at rest [Unknown]
  - Hypotension [Recovered/Resolved]
  - Pain in jaw [Unknown]
  - Scrotal oedema [Recovered/Resolved]
  - Abdominal distension [Unknown]
  - Headache [Unknown]
  - Device dislocation [Recovered/Resolved]
  - Renal impairment [Recovering/Resolving]
  - Catheter site infection [Recovered/Resolved]
  - Cardiac failure chronic [Recovered/Resolved]
  - Oxygen consumption increased [Recovered/Resolved]
  - Constipation [Unknown]
  - Unevaluable event [Recovered/Resolved]
  - Cardiac operation [Unknown]
  - Device related infection [Recovered/Resolved]
  - Drug hypersensitivity [Unknown]
  - Ascites [Not Recovered/Not Resolved]
  - Weight decreased [Unknown]
  - Dyspnoea exertional [Unknown]
  - Peripheral swelling [Unknown]
  - Hepatic cirrhosis [Unknown]
  - Hyperkalaemia [Recovered/Resolved]
  - Accidental overdose [Recovered/Resolved]

NARRATIVE: CASE EVENT DATE: 20190321
